FAERS Safety Report 7578783-1 (Version None)
Quarter: 2011Q2

REPORT INFORMATION
  Report Type: 
  Country: None (occurrence: None)
  Receive Date: 20110628
  Receipt Date: 20110622
  Transmission Date: 20111010
  Serious: Yes (Other)
  Sender: FDA-Public Use
  Company Number: FR-ABBOTT-11P-056-0734627-00

PATIENT
  Age: 47 Year
  Sex: Female

DRUGS (4)
  1. HUMIRA [Suspect]
     Indication: PSORIATIC ARTHROPATHY
     Route: 058
     Dates: start: 20110501, end: 20110520
  2. DICLOFENAC SODIUM [Concomitant]
     Indication: PSORIATIC ARTHROPATHY
  3. ACETAMINOPHEN [Concomitant]
     Indication: PSORIATIC ARTHROPATHY
  4. LEFLUNOMIDE [Concomitant]
     Indication: PSORIATIC ARTHROPATHY
     Dates: start: 20100401

REACTIONS (3)
  - ASTHENIA [None]
  - HYPERSENSITIVITY [None]
  - PAIN [None]
